FAERS Safety Report 10579865 (Version 3)
Quarter: 2015Q2

REPORT INFORMATION
  Report Type: Spontaneous
  Country: US (occurrence: US)
  Receive Date: 20141112
  Receipt Date: 20150521
  Transmission Date: 20150821
  Serious: Yes (Hospitalization, Other)
  Sender: FDA-Public Use
  Company Number: US-GLAXOSMITHKLINE-US2014019418

PATIENT
  Sex: Male
  Weight: 87.35 kg

DRUGS (7)
  1. ANORO ELLIPTA [Suspect]
     Active Substance: UMECLIDINIUM BROMIDE\VILANTEROL TRIFENATATE
     Indication: CHRONIC OBSTRUCTIVE PULMONARY DISEASE
     Dosage: 62.5/25 MCG
     Route: 055
     Dates: start: 20150213, end: 20150330
  2. SINGULAIR [Concomitant]
     Active Substance: MONTELUKAST SODIUM
  3. SPIRIVA RESPIMAT [Concomitant]
     Active Substance: TIOTROPIUM BROMIDE
  4. LISINOPRIL. [Concomitant]
     Active Substance: LISINOPRIL
  5. COMBIVENT [Concomitant]
     Active Substance: ALBUTEROL SULFATE\IPRATROPIUM BROMIDE
  6. FLUTICASONE [Concomitant]
     Active Substance: FLUTICASONE\FLUTICASONE PROPIONATE
  7. BREO ELLIPTA [Suspect]
     Active Substance: FLUTICASONE FUROATE\VILANTEROL TRIFENATATE
     Indication: PRODUCT USED FOR UNKNOWN INDICATION

REACTIONS (5)
  - Pharyngeal oedema [Recovered/Resolved]
  - Pharyngeal hypoaesthesia [Recovered/Resolved]
  - Drug ineffective [Unknown]
  - Anaphylactic reaction [Recovered/Resolved]
  - Dyspnoea [Unknown]
